FAERS Safety Report 8427377-4 (Version None)
Quarter: 2012Q2

REPORT INFORMATION
  Report Type: 
  Country: None (occurrence: None)
  Receive Date: 20120611
  Receipt Date: 20120531
  Transmission Date: 20120825
  Serious: Yes (Other)
  Sender: FDA-Public Use
  Company Number: JP-ALEXION PHARMACEUTICALS INC.-A201201102

PATIENT
  Age: 73 Year
  Sex: Female

DRUGS (8)
  1. SOLIRIS [Suspect]
     Indication: PAROXYSMAL NOCTURNAL HAEMOGLOBINURIA
     Dosage: 900 MG Q3W
     Route: 042
     Dates: start: 20110301
  2. AMLODIPINE [Concomitant]
     Dosage: 10 MG, QD
  3. SELBEX [Concomitant]
  4. ASPIRIN [Concomitant]
     Dosage: 100 MG, QD
  5. LASIX [Concomitant]
     Dosage: 10 MG, QD
  6. PREDNISOLONE [Concomitant]
     Dosage: 15 MG, QD
     Dates: start: 20110314
  7. PREDNISOLONE [Concomitant]
     Dosage: 20 MG, QD
     Dates: start: 20110216
  8. LANSOPRAZOLE [Concomitant]
     Dosage: 15 MG, QD

REACTIONS (3)
  - SEPSIS [None]
  - AGRANULOCYTOSIS [None]
  - MENINGITIS BACTERIAL [None]
